FAERS Safety Report 5390030-8 (Version None)
Quarter: 2007Q3

REPORT INFORMATION
  Report Type: 
  Country: None (occurrence: None)
  Receive Date: 20070713
  Receipt Date: 20070706
  Transmission Date: 20080115
  Serious: Yes (Death, Other)
  Sender: FDA-Public Use
  Company Number: 2007SP011340

PATIENT
  Sex: Female

DRUGS (4)
  1. TEMODAL [Suspect]
     Indication: GLIOBLASTOMA
     Dosage: 150 MC/M2; 200 MG/M2; 150 MG/M2
     Dates: start: 20050824, end: 20050828
  2. TEMODAL [Suspect]
     Indication: GLIOBLASTOMA
     Dosage: 150 MC/M2; 200 MG/M2; 150 MG/M2
     Dates: start: 20050921, end: 20050925
  3. FORTECORTIN /00016001/ [Concomitant]
  4. NEXIUM [Concomitant]

REACTIONS (3)
  - DEEP VEIN THROMBOSIS [None]
  - NEOPLASM PROGRESSION [None]
  - PULMONARY EMBOLISM [None]
